FAERS Safety Report 21504994 (Version 10)
Quarter: 2023Q2

REPORT INFORMATION
  Report Type: Report from Study
  Country: ES (occurrence: ES)
  Receive Date: 20221025
  Receipt Date: 20230621
  Transmission Date: 20230721
  Serious: Yes (Life-Threatening)
  Sender: FDA-Public Use
  Company Number: ES-AMGEN-ESPCT2022183464

PATIENT
  Age: 8 Year
  Sex: Male

DRUGS (33)
  1. CARFILZOMIB [Suspect]
     Active Substance: CARFILZOMIB
     Indication: Acute lymphocytic leukaemia
     Dosage: 53 MILLIGRAM
     Route: 040
     Dates: start: 20220822
  2. METHOTREXATE [Suspect]
     Active Substance: METHOTREXATE
     Indication: Acute lymphocytic leukaemia
     Dosage: 12 MILLIGRAM
     Route: 029
     Dates: start: 20221006, end: 20221020
  3. SULFAMETHOXAZOLE\TRIMETHOPRIM [Concomitant]
     Active Substance: SULFAMETHOXAZOLE\TRIMETHOPRIM
     Dosage: 68 MILLIGRAM
     Route: 048
     Dates: start: 20211118
  4. OMEPRAZOLE [Concomitant]
     Active Substance: OMEPRAZOLE
     Dosage: 20 MILLIGRAM
     Route: 042
     Dates: start: 20220802
  5. ONDANSETRON [Concomitant]
     Active Substance: ONDANSETRON
     Dosage: 4 MILLIGRAM
     Route: 042
     Dates: start: 20220822
  6. MICAFUNGIN [Concomitant]
     Active Substance: MICAFUNGIN SODIUM
     Dosage: 80 MILLIGRAM
     Route: 042
     Dates: start: 20220722
  7. ACYCLOVIR [Concomitant]
     Active Substance: ACYCLOVIR
     Dosage: 200- 500 MILLIGRAM
     Route: 048
     Dates: start: 20220126, end: 20221026
  8. DEXCHLORPHENIRAMINE [Concomitant]
     Active Substance: DEXCHLORPHENIRAMINE
     Dosage: 3 MILLIGRAM
     Route: 042
     Dates: start: 20221013, end: 20221013
  9. METAMIZOLE [Concomitant]
     Active Substance: METAMIZOLE
     Dosage: 850 MILLIGRAM
     Route: 042
     Dates: start: 20221018
  10. ACETAMINOPHEN [Concomitant]
     Active Substance: ACETAMINOPHEN
     Dosage: 350 MILLIGRAM
     Route: 042
     Dates: start: 20221018
  11. PIPERACILLIN SODIUM\TAZOBACTAM SODIUM [Concomitant]
     Active Substance: PIPERACILLIN SODIUM\TAZOBACTAM SODIUM
     Dosage: 3000 MILLIGRAM
     Route: 042
     Dates: start: 20221013, end: 20221017
  12. CEFTAZIDIME [Concomitant]
     Active Substance: CEFTAZIDIME
     Dosage: 1400 MILLIGRAM
     Route: 042
     Dates: start: 20221017, end: 20221022
  13. ALBUMIN HUMAN [Concomitant]
     Active Substance: ALBUMIN HUMAN
     Dosage: 20 GRAM
     Route: 042
     Dates: start: 20221016, end: 20221016
  14. URSODIOL [Concomitant]
     Active Substance: URSODIOL
     Dosage: 350 MILLIGRAM
     Route: 048
     Dates: start: 20220724, end: 20221103
  15. PEG/L-ASPARAGINASE [Concomitant]
     Active Substance: PEGASPARGASE
     Dosage: 950 INTERNATIONAL UNIT
     Dates: start: 20221020, end: 20221020
  16. VINCRISTINE [Concomitant]
     Active Substance: VINCRISTINE
     Dosage: 1.4 MILLIGRAM
     Dates: start: 20221020, end: 20221027
  17. CYCLOPHOSPHAMIDE [Concomitant]
     Active Substance: CYCLOPHOSPHAMIDE
     Dosage: 950 MILLIGRAM
     Dates: start: 20221006, end: 20221006
  18. DEXAMETHASONE [Concomitant]
     Active Substance: DEXAMETHASONE
     Dosage: 2.8 MILLIGRAM
     Dates: start: 20221006, end: 20221021
  19. AMIKACIN [Concomitant]
     Active Substance: AMIKACIN
     Dosage: 375-420 MILLIGRAM
     Route: 042
     Dates: start: 20220823
  20. HYDROCORTISONE [Concomitant]
     Active Substance: HYDROCORTISONE
     Dosage: 5-25 MILLIGRAM
     Dates: start: 20220901
  21. LEVOFLOXACIN [Concomitant]
     Active Substance: LEVOFLOXACIN
     Dosage: 250-280 MILLIGRAM
     Route: 048
     Dates: start: 20220909
  22. CEFEPIME [Concomitant]
     Active Substance: CEFEPIME HYDROCHLORIDE
     Dosage: 1400 MILLIGRAM
     Route: 042
     Dates: start: 20221007, end: 20221013
  23. ENALAPRIL [Concomitant]
     Active Substance: ENALAPRIL
     Dosage: 10-15 MILLIGRAM
     Dates: start: 20221016, end: 20221106
  24. VANCOMYCIN [Concomitant]
     Active Substance: VANCOMYCIN
     Dosage: 280-500 MILLIGRAM
     Dates: start: 20221011, end: 20221026
  25. FUROSEMIDE [Concomitant]
     Active Substance: FUROSEMIDE
     Dosage: 12 MILLIGRAM
     Route: 042
     Dates: start: 20221013, end: 20221026
  26. LEVETIRACETAM [Concomitant]
     Active Substance: LEVETIRACETAM
     Dosage: 500- 675  MILLIGRAM
     Dates: start: 20220216
  27. AMLODIPINE [Concomitant]
     Active Substance: AMLODIPINE BESYLATE
     Dosage: 2.5-5 MILLIGRAM
     Route: 048
     Dates: start: 20221016, end: 20221112
  28. HYDRALAZINE [Concomitant]
     Active Substance: HYDRALAZINE HYDROCHLORIDE
     Dosage: 3-6 MILLIGRAM
     Route: 042
     Dates: start: 20221020
  29. LABETALOL [Concomitant]
     Active Substance: LABETALOL\LABETALOL HYDROCHLORIDE
     Dosage: 15-132 MILIGRAM (0.7 MILLIGRAM/KILOGRAM-0.9 MILLIGRAM/KILOGRAM)
     Dates: start: 20221022, end: 20221106
  30. MEROPENEM [Concomitant]
     Active Substance: MEROPENEM
     Dosage: 560-1120 MILLIGRAM
     Route: 042
     Dates: start: 20221022, end: 20221103
  31. MERCAPTOPURINE [Concomitant]
     Active Substance: MERCAPTOPURINE
     Dosage: 57 MILLIGRAM
     Dates: start: 20221006, end: 20221019
  32. CYTARABINE [Concomitant]
     Active Substance: CYTARABINE
     Dosage: 71 MILLIGRAM
     Route: 042
     Dates: start: 20221006, end: 20221016
  33. LORAZEPAM [Concomitant]
     Active Substance: LORAZEPAM
     Dosage: 0.5 MILLIGRAM
     Route: 048
     Dates: start: 20220728, end: 20221025

REACTIONS (1)
  - Seizure [Recovered/Resolved]

NARRATIVE: CASE EVENT DATE: 20221023
